FAERS Safety Report 6894405-7 (Version None)
Quarter: 2010Q3

REPORT INFORMATION
  Report Type: 
  Country: None (occurrence: None)
  Receive Date: 20100802
  Receipt Date: 20100722
  Transmission Date: 20110219
  Serious: Yes (Hospitalization)
  Sender: FDA-Public Use
  Company Number: JP-ELI_LILLY_AND_COMPANY-JP201007005467

PATIENT
  Age: 82 Year
  Sex: Female

DRUGS (3)
  1. TADALAFIL [Suspect]
     Dosage: 20 MG, DAILY (1/D)
     Route: 048
     Dates: start: 20100625
  2. TADALAFIL [Suspect]
     Dosage: 40 MG, DAILY (1/D)
     Route: 048
     Dates: start: 20100629, end: 20100721
  3. TRACLEER [Concomitant]
     Route: 065

REACTIONS (1)
  - PULMONARY OEDEMA [None]
